FAERS Safety Report 8355737-9 (Version None)
Quarter: 2012Q2

REPORT INFORMATION
  Report Type: 
  Country: None (occurrence: None)
  Receive Date: 20120514
  Receipt Date: 20120507
  Transmission Date: 20120825
  Serious: No
  Sender: FDA-Public Use
  Company Number: US-PFIZER INC-2012111740

PATIENT
  Sex: Female
  Weight: 72.562 kg

DRUGS (3)
  1. EPINEPHRINE [Suspect]
     Dosage: UNK
  2. LIDOCAINE HYDROCHLORIDE [Suspect]
     Dosage: UNK
  3. BENICAR HCT [Concomitant]
     Indication: HYPERTENSION
     Dosage: UNK
     Route: 048

REACTIONS (2)
  - HYPERSENSITIVITY [None]
  - DRUG HYPERSENSITIVITY [None]
